FAERS Safety Report 7121940-9 (Version None)
Quarter: 2010Q4

REPORT INFORMATION
  Report Type: 
  Country: None (occurrence: None)
  Receive Date: 20101124
  Receipt Date: 20101116
  Transmission Date: 20110411
  Serious: Yes (Hospitalization, Congenital Anomaly)
  Sender: FDA-Public Use
  Company Number: A0679758A

PATIENT
  Sex: Male
  Weight: 3.9 kg

DRUGS (3)
  1. PAXIL [Suspect]
     Indication: DEPRESSION
     Dates: start: 20000101, end: 20010101
  2. PAXIL CR [Suspect]
     Indication: DEPRESSION
     Dates: start: 20000101, end: 20010101
  3. PRENATAL VITAMINS [Concomitant]

REACTIONS (9)
  - CARDIAC MURMUR [None]
  - DRUG EXPOSURE DURING PREGNANCY [None]
  - ELECTROCARDIOGRAM T WAVE ABNORMAL [None]
  - FALLOT'S TETRALOGY [None]
  - MATERNAL DRUGS AFFECTING FOETUS [None]
  - MULTIPLE CONGENITAL ABNORMALITIES [None]
  - QRS AXIS ABNORMAL [None]
  - RIGHT VENTRICULAR HYPERTROPHY [None]
  - SINUS TACHYCARDIA [None]
